FAERS Safety Report 10357173 (Version 1)
Quarter: 2014Q3

REPORT INFORMATION
  Report Type: Report from Study
  Country: BR (occurrence: BR)
  Receive Date: 20140801
  Receipt Date: 20140801
  Transmission Date: 20150326
  Serious: Yes (Death)
  Sender: FDA-Public Use
  Company Number: PHHY2014BR094187

PATIENT
  Sex: Female

DRUGS (1)
  1. ONBREZ [Suspect]
     Active Substance: INDACATEROL
     Dosage: 1 DF, DAILY
     Route: 048

REACTIONS (2)
  - Death [Fatal]
  - Incorrect route of drug administration [Unknown]
